FAERS Safety Report 18875466 (Version 2)
Quarter: 2021Q1

REPORT INFORMATION
  Report Type: Spontaneous
  Country: JP (occurrence: JP)
  Receive Date: 20210210
  Receipt Date: 20210225
  Transmission Date: 20210420
  Serious: Yes (Other)
  Sender: FDA-Public Use
  Company Number: JP-ABBVIE-21K-087-3769162-00

PATIENT
  Age: 65 Year
  Sex: Male
  Weight: 63 kg

DRUGS (9)
  1. KALETRA [Suspect]
     Active Substance: LOPINAVIR\RITONAVIR
     Indication: COVID-19 PNEUMONIA
     Route: 048
  2. TAZOBACTAM SODIUM AND PIPERACILLIN SODIUM [Concomitant]
     Active Substance: PIPERACILLIN SODIUM\TAZOBACTAM SODIUM
     Indication: PRODUCT USED FOR UNKNOWN INDICATION
  3. CEFTRIAXONE SODIUM HYDRATE [Concomitant]
     Active Substance: CEFTRIAXONE SODIUM
     Indication: COVID-19 PNEUMONIA
  4. METHYLPREDNISOLONE. [Concomitant]
     Active Substance: METHYLPREDNISOLONE
  5. AZITHROMYCIN MONOHYDRATE. [Concomitant]
     Active Substance: AZITHROMYCIN MONOHYDRATE
     Indication: COVID-19 PNEUMONIA
  6. METHYLPREDNISOLONE. [Concomitant]
     Active Substance: METHYLPREDNISOLONE
     Indication: PRODUCT USED FOR UNKNOWN INDICATION
  7. METHYLPREDNISOLONE. [Concomitant]
     Active Substance: METHYLPREDNISOLONE
  8. METHYLPREDNISOLONE. [Concomitant]
     Active Substance: METHYLPREDNISOLONE
  9. METHYLPREDNISOLONE. [Concomitant]
     Active Substance: METHYLPREDNISOLONE

REACTIONS (6)
  - Endotracheal intubation [Recovered/Resolved]
  - Systemic candida [Recovering/Resolving]
  - Mechanical ventilation [Recovered/Resolved]
  - Hepatic function abnormal [Unknown]
  - Pneumonia [Recovering/Resolving]
  - Off label use [Unknown]
